FAERS Safety Report 8537195 (Version 5)
Quarter: 2012Q4

REPORT INFORMATION
  Report Type: 
  Country: US (occurrence: US)
  Receive Date: 20120430
  Receipt Date: 20120918
  Transmission Date: 20130627
  Serious: Yes (Hospitalization)
  Sender: FDA-Public Use
  Company Number: US-ACTELION-A-US2012-64114

PATIENT
  Age: 54 Year
  Sex: Male
  Weight: 54.88 kg

DRUGS (4)
  1. VELETRI [Suspect]
     Indication: PULMONARY ARTERIAL HYPERTENSION
     Dosage: 60 ng/kg, per min
     Route: 042
     Dates: start: 20101001
  2. BACTRIM [Suspect]
  3. LETAIRIS [Concomitant]
  4. SILDENAFIL [Concomitant]
     Dosage: UNK
     Dates: start: 20070901

REACTIONS (5)
  - Idiopathic thrombocytopenic purpura [Recovering/Resolving]
  - Epistaxis [Recovering/Resolving]
  - Platelet count decreased [Recovering/Resolving]
  - Platelet transfusion [Recovering/Resolving]
  - Petechiae [Recovering/Resolving]
